FAERS Safety Report 5275073-7 (Version None)
Quarter: 2007Q1

REPORT INFORMATION
  Report Type: 
  Country: None (occurrence: None)
  Receive Date: 20061219
  Receipt Date: 20060928
  Transmission Date: 20070707
  Serious: Yes (Other)
  Sender: FDA-Public Use
  Company Number: US-JNJFOC-20061000253

PATIENT
  Age: 46 Year
  Sex: Female
  Weight: 57.1532 kg

DRUGS (2)
  1. ORTHO EVRA [Suspect]
     Indication: MENSTRUAL DISCOMFORT
     Dosage: TRANSDERMAL
     Route: 062
     Dates: start: 20031101
  2. IMITREX [Concomitant]

REACTIONS (2)
  - CEREBROVASCULAR ACCIDENT [None]
  - MIGRAINE [None]
